FAERS Safety Report 18776012 (Version 1)
Quarter: 2021Q1

REPORT INFORMATION
  Report Type: Report from Study
  Country: US (occurrence: US)
  Receive Date: 20210122
  Receipt Date: 20210122
  Transmission Date: 20210419
  Serious: Yes (Hospitalization)
  Sender: FDA-Public Use
  Company Number: US-SHIRE-US201838037

PATIENT
  Age: 58 Year
  Sex: Female

DRUGS (6)
  1. PARATHYROID HORMONE [Suspect]
     Active Substance: PARATHYROID HORMONE
     Indication: PRODUCT USED FOR UNKNOWN INDICATION
     Dosage: 50 MICROGRAM, QD
     Route: 058
     Dates: start: 20180316
  2. PARATHYROID HORMONE [Suspect]
     Active Substance: PARATHYROID HORMONE
     Indication: PRODUCT USED FOR UNKNOWN INDICATION
     Dosage: 50 MICROGRAM, QD
     Route: 058
     Dates: start: 20180316
  3. PARATHYROID HORMONE [Suspect]
     Active Substance: PARATHYROID HORMONE
     Indication: PRODUCT USED FOR UNKNOWN INDICATION
     Dosage: 50 MICROGRAM, QD
     Route: 058
     Dates: start: 20180316
  4. PARATHYROID HORMONE [Suspect]
     Active Substance: PARATHYROID HORMONE
     Dosage: 50 MICROGRAM, QD
     Route: 050
     Dates: start: 20180320, end: 20210116
  5. PARATHYROID HORMONE [Suspect]
     Active Substance: PARATHYROID HORMONE
     Dosage: 50 MICROGRAM, QD
     Route: 050
     Dates: start: 20180320, end: 20210116
  6. PARATHYROID HORMONE [Suspect]
     Active Substance: PARATHYROID HORMONE
     Dosage: 50 MICROGRAM, QD
     Route: 050
     Dates: start: 20180320, end: 20210116

REACTIONS (9)
  - Dyspnoea [Unknown]
  - Renal disorder [Unknown]
  - Swollen tongue [Unknown]
  - Tinnitus [Unknown]
  - Hypersensitivity [Unknown]
  - Facial pain [Not Recovered/Not Resolved]
  - Product dose omission issue [Unknown]
  - Hypocalcaemia [Recovering/Resolving]
  - DiGeorge^s syndrome [Unknown]

NARRATIVE: CASE EVENT DATE: 20180910
